FAERS Safety Report 23041651 (Version 1)
Quarter: 2023Q4

REPORT INFORMATION
  Report Type: Spontaneous
  Country: US (occurrence: None)
  Receive Date: 20231007
  Receipt Date: 20231007
  Transmission Date: 20240110
  Serious: No
  Sender: FDA-Public Use
  Company Number: US-Unichem Pharmaceuticals (USA) Inc-UCM202212-001339

PATIENT
  Age: 76 Year
  Sex: Male
  Weight: 95.25 kg

DRUGS (1)
  1. BISOPROLOL FUMARATE [Suspect]
     Active Substance: BISOPROLOL FUMARATE
     Indication: Heart rate abnormal
     Dosage: ONE PILL A DAY (180 COUNT)

REACTIONS (1)
  - Therapeutic product effect incomplete [Unknown]
